FAERS Safety Report 7915588-3 (Version None)
Quarter: 2011Q4

REPORT INFORMATION
  Report Type: 
  Country: None (occurrence: None)
  Receive Date: 20111115
  Receipt Date: 20110725
  Transmission Date: 20120403
  Serious: Yes (Other)
  Sender: FDA-Public Use
  Company Number: US-BRISTOL-MYERS SQUIBB COMPANY-15922172

PATIENT

DRUGS (1)
  1. YERVOY [Suspect]
     Dosage: APPROX 4 WEEKS

REACTIONS (1)
  - METASTASES TO CENTRAL NERVOUS SYSTEM [None]
